FAERS Safety Report 5734772-0 (Version None)
Quarter: 2008Q2

REPORT INFORMATION
  Report Type: 
  Country: None (occurrence: None)
  Receive Date: 20080501
  Receipt Date: 20080228
  Transmission Date: 20081010
  Serious: Yes (Hospitalization)
  Sender: FDA-Public Use
  Company Number: 167140USA

PATIENT
  Age: 63 Year
  Sex: Female
  Weight: 77.1115 kg

DRUGS (7)
  1. GLIMEPIRIDE 1 MG, 2 MG + 4 MG TABLETS (GLIMEPIRIDE) [Suspect]
     Indication: DIABETES MELLITUS
     Dosage: 1 MG 2 X PER DAY (1 MG,2 IN 1 D),ORAL
     Route: 048
     Dates: end: 20080114
  2. NAPROXEN [Suspect]
     Indication: PAIN IN EXTREMITY
     Dosage: 1000 MG (500 MG,2 IN 1 D),ORAL
     Route: 048
     Dates: start: 20080110, end: 20080112
  3. LANSOPRAZOLE [Concomitant]
  4. SIMVASTATIN [Concomitant]
  5. METFORMIN HCL [Concomitant]
  6. ENALAPRIL MALEATE [Concomitant]
  7. HYDROCHLOROTHIAZIDE [Concomitant]

REACTIONS (5)
  - CONFUSIONAL STATE [None]
  - HYPOGLYCAEMIA [None]
  - LOSS OF CONSCIOUSNESS [None]
  - ROAD TRAFFIC ACCIDENT [None]
  - UNRESPONSIVE TO STIMULI [None]
